FAERS Safety Report 13619572 (Version 2)
Quarter: 2017Q2

REPORT INFORMATION
  Report Type: Spontaneous
  Country: JP (occurrence: JP)
  Receive Date: 20170606
  Receipt Date: 20170613
  Transmission Date: 20170830
  Serious: Yes (Other)
  Sender: FDA-Public Use
  Company Number: JP-BAYER-2017-107051

PATIENT
  Age: 64 Year
  Sex: Male

DRUGS (2)
  1. ANTIHEMOPHILIC FACTOR (RECOMBINANT), SUCROSE FORMULATED FS [Suspect]
     Active Substance: ANTIHEMOPHILIC FACTOR, HUMAN RECOMBINANT
     Indication: FACTOR VIII DEFICIENCY
     Dosage: 1 DF, ONCE, FOR TOOTH EXTRACTION
  2. ANTIHEMOPHILIC FACTOR (RECOMBINANT), SUCROSE FORMULATED FS [Suspect]
     Active Substance: ANTIHEMOPHILIC FACTOR, HUMAN RECOMBINANT
     Indication: FACTOR VIII DEFICIENCY
     Dosage: UNK

REACTIONS (8)
  - Oesophageal intramural haematoma [None]
  - Anti factor VIII antibody increased [None]
  - Renal haematoma [None]
  - Muscle haemorrhage [None]
  - Soft tissue haemorrhage [None]
  - Haematuria [None]
  - Back pain [None]
  - Anaemia [None]
